FAERS Safety Report 7210771-7 (Version None)
Quarter: 2010Q4

REPORT INFORMATION
  Report Type: 
  Country: None (occurrence: None)
  Receive Date: 20101223
  Receipt Date: 20101221
  Transmission Date: 20110411
  Serious: Yes (Death, Hospitalization, Other)
  Sender: FDA-Public Use
  Company Number: 2010AP002642

PATIENT
  Age: 33 Year
  Sex: Female

DRUGS (6)
  1. ATORVASTATIN (ATORVASTATIN) [Suspect]
     Indication: PRODUCT USED FOR UNKNOWN INDICATION
     Dosage: 100 MG
  2. FUROSEMIDE [Suspect]
     Indication: PRODUCT USED FOR UNKNOWN INDICATION
  3. DICLOFENAC SODIUM [Suspect]
     Indication: PRODUCT USED FOR UNKNOWN INDICATION
  4. COLCHICINE [Suspect]
     Indication: PRODUCT USED FOR UNKNOWN INDICATION
     Dosage: 20 MG
  5. IBUPROFEN [Suspect]
     Indication: PRODUCT USED FOR UNKNOWN INDICATION
  6. PROPOFOL [Suspect]
     Indication: PRODUCT USED FOR UNKNOWN INDICATION

REACTIONS (17)
  - BRAIN OEDEMA [None]
  - CARDIAC ARREST [None]
  - COAGULOPATHY [None]
  - CONVULSION [None]
  - DRUG INTERACTION [None]
  - ENCEPHALOPATHY [None]
  - ENTEROCOLITIS [None]
  - HEPATIC FAILURE [None]
  - HYPERTRIGLYCERIDAEMIA [None]
  - HYPOXIA [None]
  - OVERDOSE [None]
  - PANCYTOPENIA [None]
  - PULMONARY ALVEOLAR HAEMORRHAGE [None]
  - RENAL FAILURE [None]
  - RHABDOMYOLYSIS [None]
  - SEPSIS [None]
  - SHOCK HAEMORRHAGIC [None]
